FAERS Safety Report 6220453-6 (Version None)
Quarter: 2009Q2

REPORT INFORMATION
  Report Type: 
  Country: None (occurrence: None)
  Receive Date: 20090610
  Receipt Date: 20090603
  Transmission Date: 20091009
  Serious: Yes (Hospitalization)
  Sender: FDA-Public Use
  Company Number: FR-JNJFOC-20090502259

PATIENT
  Sex: Female

DRUGS (4)
  1. IMODIUM [Suspect]
     Indication: DIARRHOEA
     Route: 048
  2. DEPAMIDE [Suspect]
     Indication: MAJOR DEPRESSION
     Route: 048
  3. PAROXETINE HCL [Suspect]
     Indication: MAJOR DEPRESSION
     Route: 048
  4. LEXOMIL [Suspect]
     Indication: ANXIETY
     Route: 048

REACTIONS (1)
  - THROMBOCYTOPENIA [None]
